FAERS Safety Report 25277234 (Version 1)
Quarter: 2025Q2

REPORT INFORMATION
  Report Type: Spontaneous
  Country: ES (occurrence: ES)
  Receive Date: 20250507
  Receipt Date: 20250507
  Transmission Date: 20250717
  Serious: Yes (Life-Threatening, Hospitalization, Other)
  Sender: EXELA PHARMA SCIENCES
  Company Number: US-EXELAPHARMA-2025EXLA00060

PATIENT
  Age: 21 Year
  Sex: Male

DRUGS (10)
  1. SODIUM BICARBONATE [Suspect]
     Active Substance: SODIUM BICARBONATE
     Indication: Toxicity to various agents
     Route: 065
  2. NOREPINEPHRINE [Concomitant]
     Active Substance: NOREPINEPHRINE
     Route: 065
  3. PROPOFOL [Concomitant]
     Active Substance: PROPOFOL
     Indication: Sedation
     Route: 042
  4. FENTANYL [Concomitant]
     Active Substance: FENTANYL
     Indication: Analgesic therapy
     Route: 042
  5. MIDAZOLAM [Concomitant]
     Active Substance: MIDAZOLAM
     Indication: Generalised tonic-clonic seizure
     Route: 040
  6. LEVETIRACETAM [Concomitant]
     Active Substance: LEVETIRACETAM
     Indication: Generalised tonic-clonic seizure
     Route: 042
  7. DEXMEDETOMIDINE [Concomitant]
     Active Substance: DEXMEDETOMIDINE
     Indication: Sedation
     Route: 065
  8. REMIFENTANIL [Concomitant]
     Active Substance: REMIFENTANIL
     Route: 065
  9. QUETIAPINE [Concomitant]
     Active Substance: QUETIAPINE
  10. CLORAZEPATE DIPOTASSIUM [Concomitant]
     Active Substance: CLORAZEPATE DIPOTASSIUM

REACTIONS (1)
  - Drug ineffective [Not Recovered/Not Resolved]
